FAERS Safety Report 13423202 (Version 1)
Quarter: 2017Q2

REPORT INFORMATION
  Report Type: Spontaneous
  Country: FR (occurrence: FR)
  Receive Date: 20170410
  Receipt Date: 20170410
  Transmission Date: 20170830
  Serious: Yes (Congenital Anomaly)
  Sender: FDA-Public Use
  Company Number: FR-MEDA-2017030110

PATIENT
  Sex: Female
  Weight: 2.9 kg

DRUGS (5)
  1. TIMOFEROL [Concomitant]
     Active Substance: ASCORBIC ACID\FERROUS SULFATE
  2. CETIRIZINE [Suspect]
     Active Substance: CETIRIZINE HYDROCHLORIDE
     Route: 064
  3. ALLERGODIL [Suspect]
     Active Substance: AZELASTINE
     Route: 064
  4. GESTARELLE [Concomitant]
  5. NASONEX [Suspect]
     Active Substance: MOMETASONE FUROATE
     Route: 064

REACTIONS (2)
  - Gastroschisis [Recovering/Resolving]
  - Foetal exposure during pregnancy [Unknown]

NARRATIVE: CASE EVENT DATE: 2016
